FAERS Safety Report 17464248 (Version 6)
Quarter: 2020Q1

REPORT INFORMATION
  Report Type: Report from Study
  Country: US (occurrence: US)
  Receive Date: 20200226
  Receipt Date: 20200331
  Transmission Date: 20200409
  Serious: Yes (Hospitalization, Other)
  Sender: FDA-Public Use
  Company Number: US-ACTELION-A-US2020-201862

PATIENT
  Age: 56 Year
  Sex: Male
  Weight: 106.58 kg

DRUGS (23)
  1. LORAZEPAM. [Concomitant]
     Active Substance: LORAZEPAM
  2. UPTRAVI [Suspect]
     Active Substance: SELEXIPAG
     Dosage: 1400 MCG, BID
     Route: 048
  3. OPSUMIT [Suspect]
     Active Substance: MACITENTAN
     Indication: PULMONARY HYPERTENSION
     Dosage: 10 MG, QD
     Route: 048
     Dates: start: 201511
  4. TYVASO [Suspect]
     Active Substance: TREPROSTINIL
     Indication: PRODUCT USED FOR UNKNOWN INDICATION
     Dosage: 9 BREATHS 4 TIMES A DAY
     Route: 065
  5. GABAPENTIN. [Suspect]
     Active Substance: GABAPENTIN
     Indication: PRODUCT USED FOR UNKNOWN INDICATION
     Dosage: UNK
     Route: 065
  6. UPTRAVI [Suspect]
     Active Substance: SELEXIPAG
     Dosage: 800 MCG, BID
     Route: 048
  7. DOCUSATE SODIUM. [Concomitant]
     Active Substance: DOCUSATE SODIUM
  8. BUPROPIONE [Concomitant]
     Active Substance: BUPROPION HYDROCHLORIDE
  9. PANTOPRAZOLE [Concomitant]
     Active Substance: PANTOPRAZOLE
  10. DIGOXIN. [Concomitant]
     Active Substance: DIGOXIN
  11. ASPIRIN. [Concomitant]
     Active Substance: ASPIRIN
  12. UPTRAVI [Suspect]
     Active Substance: SELEXIPAG
     Indication: PULMONARY HYPERTENSION
     Dosage: 1400 MCG, QAM/ 1600MCG QPM
     Route: 048
  13. TRIAMCINOLONE [Concomitant]
     Active Substance: TRIAMCINOLONE
  14. SPIRONOLACTONE. [Concomitant]
     Active Substance: SPIRONOLACTONE
  15. UPTRAVI [Suspect]
     Active Substance: SELEXIPAG
     Dosage: 200 MCG, BID
     Route: 048
  16. VENTOLIN HFA [Concomitant]
     Active Substance: ALBUTEROL SULFATE
  17. ADCIRCA [Concomitant]
     Active Substance: TADALAFIL
  18. ADVAIR HFA [Concomitant]
     Active Substance: FLUTICASONE PROPIONATE\SALMETEROL XINAFOATE
  19. CRESTOR [Concomitant]
     Active Substance: ROSUVASTATIN CALCIUM
  20. UPTRAVI [Suspect]
     Active Substance: SELEXIPAG
     Dosage: 1200 MCG, BID
     Route: 048
  21. LASIX [Concomitant]
     Active Substance: FUROSEMIDE
  22. UPTRAVI [Suspect]
     Active Substance: SELEXIPAG
     Dosage: 600 MCG, BID
     Route: 048
  23. GABAPENTIN. [Suspect]
     Active Substance: GABAPENTIN
     Dosage: 100 MCG, BID
     Route: 065

REACTIONS (26)
  - Dyspnoea exertional [Unknown]
  - Pain in jaw [Not Recovered/Not Resolved]
  - Pain in extremity [Unknown]
  - Fluid retention [Unknown]
  - Fatigue [Unknown]
  - Tremor [Unknown]
  - General physical health deterioration [Unknown]
  - Toothache [Unknown]
  - Bradyphrenia [Unknown]
  - Pulmonary hypertension [Unknown]
  - Hyperhidrosis [Unknown]
  - Headache [Unknown]
  - Therapy change [Unknown]
  - Abdominal distension [Unknown]
  - Feeling abnormal [Unknown]
  - Depressed mood [Unknown]
  - Nausea [Not Recovered/Not Resolved]
  - Constipation [Unknown]
  - Dyspnoea [Unknown]
  - Dizziness [Unknown]
  - Presyncope [Unknown]
  - Frustration tolerance decreased [Unknown]
  - Back pain [Unknown]
  - Loss of personal independence in daily activities [Unknown]
  - Therapy non-responder [Unknown]
  - Abdominal discomfort [Unknown]

NARRATIVE: CASE EVENT DATE: 20200214
